FAERS Safety Report 11857429 (Version 1)
Quarter: 2015Q4

REPORT INFORMATION
  Report Type: Report from Study
  Country: IN (occurrence: IN)
  Receive Date: 20151221
  Receipt Date: 20151221
  Transmission Date: 20160305
  Serious: Yes (Death)
  Sender: FDA-Public Use
  Company Number: PHHY2015IN166601

PATIENT
  Age: 85 Year
  Sex: Male

DRUGS (3)
  1. PETRIL [Concomitant]
     Active Substance: CLONAZEPAM
     Indication: DEPRESSION
     Dosage: 0.5 MG, QD
     Route: 048
     Dates: start: 20150218
  2. BENIFORTE [Concomitant]
     Indication: VITAMIN SUPPLEMENTATION
     Dosage: QD
     Route: 048
     Dates: start: 20150218
  3. EXELON PATCH [Suspect]
     Active Substance: RIVASTIGMINE
     Indication: DEMENTIA ALZHEIMER^S TYPE
     Dosage: PATCH 5 CM2, QD
     Route: 062
     Dates: start: 20150218

REACTIONS (2)
  - Fall [Fatal]
  - Head injury [Fatal]
